FAERS Safety Report 6589967-3 (Version None)
Quarter: 2010Q1

REPORT INFORMATION
  Report Type: 
  Country: None (occurrence: None)
  Receive Date: 20100219
  Receipt Date: 20100206
  Transmission Date: 20100710
  Serious: Yes (Other)
  Sender: FDA-Public Use
  Company Number: PHHY2010CA06770

PATIENT
  Sex: Female

DRUGS (3)
  1. ALISKIREN ALI+ [Suspect]
     Indication: HYPERTENSION
     Dosage: 150 MG DAILY
     Route: 048
     Dates: start: 20091102, end: 20091107
  2. CELEBREX [Concomitant]
     Dosage: 200 MG
  3. SYNTHROID [Concomitant]
     Dosage: 0.1 MG

REACTIONS (2)
  - NAUSEA [None]
  - VOMITING [None]
